FAERS Safety Report 23131952 (Version 3)
Quarter: 2023Q4

REPORT INFORMATION
  Report Type: Report from Study
  Country: US (occurrence: US)
  Receive Date: 20231101
  Receipt Date: 20231215
  Transmission Date: 20240110
  Serious: Yes (Hospitalization, Other)
  Sender: FDA-Public Use
  Company Number: US-ABBVIE-5473463

PATIENT
  Sex: Male
  Weight: 82 kg

DRUGS (5)
  1. IMBRUVICA [Suspect]
     Active Substance: IBRUTINIB
     Indication: B-cell small lymphocytic lymphoma
     Route: 048
     Dates: start: 202310
  2. LUPRON [Concomitant]
     Active Substance: LEUPROLIDE ACETATE
     Indication: Prostate cancer
     Dosage: EVERY 3 MONTHS
  3. RITUXAN [Concomitant]
     Active Substance: RITUXIMAB
     Indication: Blood calcium
     Dosage: EVERY 4 MONTHS
  4. FINASTERIDE [Concomitant]
     Active Substance: FINASTERIDE
     Indication: Prostate cancer
  5. IRON AND VITAMIN C [Concomitant]
     Indication: Anaemia

REACTIONS (4)
  - Haemoglobin decreased [Recovered/Resolved]
  - Diarrhoea [Not Recovered/Not Resolved]
  - Bone marrow failure [Not Recovered/Not Resolved]
  - Diarrhoea [Recovered/Resolved]

NARRATIVE: CASE EVENT DATE: 20230101
